FAERS Safety Report 9954289 (Version 1)
Quarter: 2014Q1

REPORT INFORMATION
  Report Type: Spontaneous
  Country: PR (occurrence: PR)
  Receive Date: 20140304
  Receipt Date: 20140304
  Transmission Date: 20141002
  Serious: No
  Sender: FDA-Public Use
  Company Number: PR-ABBVIE-13P-131-1080852-00

PATIENT
  Age: 70 Year
  Sex: Female
  Weight: 61.74 kg

DRUGS (3)
  1. HUMIRA [Suspect]
     Indication: RHEUMATOID ARTHRITIS
     Dates: start: 20130410, end: 20130410
  2. LYRICA [Concomitant]
     Indication: FIBROMYALGIA
     Dosage: AT NIGHT
  3. PEPCID [Concomitant]
     Indication: GASTRITIS
     Route: 048

REACTIONS (1)
  - Bronchitis [Recovering/Resolving]
